FAERS Safety Report 18967456 (Version 1)
Quarter: 2021Q1

REPORT INFORMATION
  Report Type: Spontaneous
  Country: US (occurrence: US)
  Receive Date: 20210304
  Receipt Date: 20210304
  Transmission Date: 20210420
  Serious: Yes (Death, Other)
  Sender: FDA-Public Use
  Company Number: US-EMCURE PHARMACEUTICALS LTD-2021-EPL-000690

PATIENT
  Age: 62 Year
  Sex: Male

DRUGS (5)
  1. TACROLIMUS. [Suspect]
     Active Substance: TACROLIMUS
     Indication: PROPHYLAXIS AGAINST GRAFT VERSUS HOST DISEASE
  2. FOSCARNET [Concomitant]
     Active Substance: FOSCARNET
     Indication: ANTIVIRAL PROPHYLAXIS
  3. CYCLOPHOSPHAMIDE. [Suspect]
     Active Substance: CYCLOPHOSPHAMIDE
     Indication: PROPHYLAXIS AGAINST GRAFT VERSUS HOST DISEASE
  4. ACYCLOVIR. [Concomitant]
     Active Substance: ACYCLOVIR
     Indication: ANTIVIRAL PROPHYLAXIS
  5. VALACYCLOVIR [Concomitant]
     Active Substance: VALACYCLOVIR HYDROCHLORIDE
     Indication: ANTIVIRAL PROPHYLAXIS

REACTIONS (5)
  - Pneumonia viral [Fatal]
  - Adenovirus infection [Fatal]
  - Graft versus host disease in gastrointestinal tract [Unknown]
  - Multiple organ dysfunction syndrome [Fatal]
  - Human herpesvirus 6 encephalitis [Unknown]
